FAERS Safety Report 9915159 (Version 1)
Quarter: 2014Q1

REPORT INFORMATION
  Report Type: Spontaneous
  Country: BR (occurrence: BR)
  Receive Date: 20140220
  Receipt Date: 20140220
  Transmission Date: 20141002
  Serious: Yes (Other)
  Sender: FDA-Public Use
  Company Number: PHHY2014BR017632

PATIENT
  Sex: Female

DRUGS (1)
  1. RAZAPINA [Suspect]
     Route: 048
     Dates: start: 20140207

REACTIONS (5)
  - Depression [Unknown]
  - Depressed mood [Unknown]
  - Blood glucose increased [Unknown]
  - Crying [Unknown]
  - Incorrect dose administered [Unknown]
